FAERS Safety Report 21354406 (Version 1)
Quarter: 2022Q3

REPORT INFORMATION
  Report Type: Spontaneous
  Country: US (occurrence: None)
  Receive Date: 20220919
  Receipt Date: 20220919
  Transmission Date: 20221026
  Serious: Yes (Other)
  Sender: FDA-Public Use
  Company Number: None

PATIENT
  Age: 36 Year
  Sex: Female

DRUGS (3)
  1. HUMIRA [Suspect]
     Active Substance: ADALIMUMAB
     Indication: Psoriasis
     Dosage: 80MG INITIALLY SQ?
     Route: 058
     Dates: start: 20220824
  2. HUMIRA [Suspect]
     Active Substance: ADALIMUMAB
     Dosage: ?40MG DAY 8 AND 22  Q 14 DAYS SQ
     Route: 058
  3. HUMIRA [Suspect]
     Active Substance: ADALIMUMAB

REACTIONS (2)
  - Paraesthesia [None]
  - Tremor [None]

NARRATIVE: CASE EVENT DATE: 20220918
